FAERS Safety Report 4836922-7 (Version None)
Quarter: 2005Q4

REPORT INFORMATION
  Report Type: 
  Country: None (occurrence: None)
  Receive Date: 20051123
  Receipt Date: 20051004
  Transmission Date: 20060501
  Serious: Yes (Hospitalization, Disabling, Other)
  Sender: FDA-Public Use
  Company Number: US-MERCK-0510USA03081

PATIENT
  Age: 59 Year
  Sex: Female
  Weight: 68 kg

DRUGS (9)
  1. VIOXX [Suspect]
     Indication: SHOULDER PAIN
     Route: 048
     Dates: start: 19991028, end: 19991126
  2. ZESTRIL [Concomitant]
     Route: 065
  3. DONNATAL [Concomitant]
     Route: 065
  4. ASPIRIN [Concomitant]
     Route: 065
  5. PLAVIX [Concomitant]
     Route: 065
  6. ASENDIN [Concomitant]
     Route: 065
  7. LOPRESSOR [Concomitant]
     Route: 065
  8. COUMADIN [Concomitant]
     Route: 065
  9. IMDUR [Concomitant]
     Route: 065

REACTIONS (8)
  - ACUTE MYOCARDIAL INFARCTION [None]
  - BRONCHITIS [None]
  - CARDIAC ANEURYSM [None]
  - ELECTROCARDIOGRAM T WAVE INVERSION [None]
  - GASTROINTESTINAL DISORDER [None]
  - HYPERTENSION [None]
  - OSTEOARTHRITIS [None]
  - VENTRICULAR DYSKINESIA [None]
